FAERS Safety Report 13177280 (Version 2)
Quarter: 2017Q3

REPORT INFORMATION
  Report Type: Report from Study
  Country: FR (occurrence: FR)
  Receive Date: 20170201
  Receipt Date: 20170731
  Transmission Date: 20171127
  Serious: No
  Sender: FDA-Public Use
  Company Number: FR-EXELIXIS-CABO-16007597

PATIENT
  Age: 50 Year
  Sex: Female
  Weight: 59 kg

DRUGS (7)
  1. LASILIX [Concomitant]
     Active Substance: FUROSEMIDE
  2. ESOMEPRAZOLE [Concomitant]
     Active Substance: ESOMEPRAZOLE
  3. CABOMETYX [Suspect]
     Active Substance: CABOZANTINIB S-MALATE
     Indication: METASTATIC RENAL CELL CARCINOMA
     Dosage: 60 MG, QD
     Route: 048
     Dates: start: 20161006
  4. PREDNISONE. [Concomitant]
     Active Substance: PREDNISONE
  5. AMLOR [Concomitant]
     Active Substance: AMLODIPINE BESYLATE
  6. LEVOTHYROX [Concomitant]
     Active Substance: LEVOTHYROXINE
  7. KEPPRA [Concomitant]
     Active Substance: LEVETIRACETAM

REACTIONS (9)
  - Blood lactate dehydrogenase increased [Unknown]
  - Diarrhoea [Unknown]
  - Aspartate aminotransferase increased [Unknown]
  - Eastern Cooperative Oncology Group performance status worsened [Unknown]
  - Neutrophil count decreased [Unknown]
  - Impaired healing [Unknown]
  - Aphthous ulcer [Unknown]
  - Hypertension [Unknown]
  - Alanine aminotransferase increased [Unknown]
